FAERS Safety Report 6620063-2 (Version None)
Quarter: 2010Q1

REPORT INFORMATION
  Report Type: 
  Country: None (occurrence: None)
  Receive Date: 20100309
  Receipt Date: 20100222
  Transmission Date: 20100710
  Serious: Yes (Other)
  Sender: FDA-Public Use
  Company Number: US-ROCHE-689206

PATIENT
  Age: 44 Year
  Sex: Female

DRUGS (7)
  1. TRASTUZUMAB [Suspect]
     Indication: BREAST CANCER
     Dosage: LOADING DOSE
     Route: 065
     Dates: start: 20090518
  2. TRASTUZUMAB [Suspect]
     Dosage: LOADING DOSE
     Route: 065
     Dates: start: 20090608
  3. TRASTUZUMAB [Suspect]
     Route: 065
     Dates: start: 20090629
  4. TRASTUZUMAB [Suspect]
     Route: 065
  5. BEVACIZUMAB [Suspect]
     Indication: BREAST CANCER
     Route: 065
     Dates: start: 20091212
  6. CYCLOPHOSPHAMIDE [Suspect]
     Indication: BREAST CANCER
     Route: 065
     Dates: start: 20091212
  7. EPIRUBICIN [Suspect]
     Indication: BREAST CANCER
     Route: 065
     Dates: start: 20091212

REACTIONS (1)
  - SYNCOPE [None]
